FAERS Safety Report 8245820-0 (Version None)
Quarter: 2012Q1

REPORT INFORMATION
  Report Type: 
  Country: None (occurrence: None)
  Receive Date: 20120330
  Receipt Date: 20120323
  Transmission Date: 20120608
  Serious: No
  Sender: FDA-Public Use
  Company Number: US-BIOGENIDEC-2012BI010433

PATIENT
  Sex: Female

DRUGS (1)
  1. AVONEX [Suspect]
     Indication: MULTIPLE SCLEROSIS
     Route: 030
     Dates: start: 19970211, end: 20110801

REACTIONS (10)
  - GENERAL PHYSICAL HEALTH DETERIORATION [None]
  - COORDINATION ABNORMAL [None]
  - FEELING HOT [None]
  - RESTLESS LEGS SYNDROME [None]
  - INCONTINENCE [None]
  - MICTURITION URGENCY [None]
  - FALL [None]
  - HYPOAESTHESIA [None]
  - OPHTHALMOPLEGIA [None]
  - GENERAL SYMPTOM [None]
